FAERS Safety Report 9407152 (Version 2)
Quarter: 2013Q3

REPORT INFORMATION
  Report Type: Spontaneous
  Country: FR (occurrence: FR)
  Receive Date: 20130718
  Receipt Date: 20130726
  Transmission Date: 20140515
  Serious: Yes (Other)
  Sender: FDA-Public Use
  Company Number: PHHY2013FR074244

PATIENT
  Age: 52 Year
  Sex: Male

DRUGS (4)
  1. PREDNISOLONE [Suspect]
     Indication: MYASTHENIA GRAVIS
     Dosage: 20 MG, UNK
  2. PREDNISOLONE [Suspect]
     Dosage: 30 MG, UNK
  3. PREDNISOLONE [Suspect]
     Dosage: 40 MG, QD
  4. RITUXIMAB [Suspect]
     Indication: MYASTHENIA GRAVIS
     Dosage: 375 MG/M2, UNK

REACTIONS (4)
  - Myocardial infarction [Unknown]
  - Chest pain [Unknown]
  - Electrocardiogram ST segment elevation [Unknown]
  - Ventricular hypokinesia [Unknown]
